FAERS Safety Report 10365712 (Version 2)
Quarter: 2015Q2

REPORT INFORMATION
  Report Type: Spontaneous
  Country: US (occurrence: US)
  Receive Date: 20140806
  Receipt Date: 20150421
  Transmission Date: 20150821
  Serious: Yes (Other)
  Sender: FDA-Public Use
  Company Number: US-ASTRAZENECA-2014SE55164

PATIENT
  Age: 47 Year
  Sex: Female
  Weight: 81.6 kg

DRUGS (11)
  1. SEROQUEL XR [Suspect]
     Active Substance: QUETIAPINE FUMARATE
     Indication: ANXIETY
     Route: 048
  2. CLONAZEPAM. [Concomitant]
     Active Substance: CLONAZEPAM
     Indication: ANXIETY
  3. SEROQUEL XR [Suspect]
     Active Substance: QUETIAPINE FUMARATE
     Indication: POST-TRAUMATIC STRESS DISORDER
     Route: 048
  4. TRAZODONE [Concomitant]
     Active Substance: TRAZODONE HYDROCHLORIDE
     Route: 048
     Dates: start: 201412, end: 201501
  5. SEROQUEL XR [Suspect]
     Active Substance: QUETIAPINE FUMARATE
     Indication: ANXIETY
     Dosage: SEROQUEL, 100MG TABLET TITRATED UP TO 300MG ONCE A DAY BY MOUTH
     Route: 048
     Dates: start: 201308, end: 201402
  6. METOPROLOL [Concomitant]
     Active Substance: METOPROLOL
     Indication: HYPERTENSION
  7. AMBIEN [Concomitant]
     Active Substance: ZOLPIDEM TARTRATE
     Indication: INSOMNIA
  8. SEROQUEL XR [Suspect]
     Active Substance: QUETIAPINE FUMARATE
     Indication: DEPRESSION
     Dosage: SEROQUEL, 100MG TABLET TITRATED UP TO 300MG ONCE A DAY BY MOUTH
     Route: 048
     Dates: start: 201308, end: 201402
  9. SEROQUEL XR [Suspect]
     Active Substance: QUETIAPINE FUMARATE
     Indication: POST-TRAUMATIC STRESS DISORDER
     Dosage: SEROQUEL, 100MG TABLET TITRATED UP TO 300MG ONCE A DAY BY MOUTH
     Route: 048
     Dates: start: 201308, end: 201402
  10. LYRICA [Suspect]
     Active Substance: PREGABALIN
     Indication: MOOD DISORDER DUE TO A GENERAL MEDICAL CONDITION
     Route: 048
     Dates: start: 20140428, end: 20150107
  11. SEROQUEL XR [Suspect]
     Active Substance: QUETIAPINE FUMARATE
     Indication: DEPRESSION
     Route: 048

REACTIONS (12)
  - Pancreatitis [Recovering/Resolving]
  - Hepatic steatosis [Recovering/Resolving]
  - Feeling abnormal [Recovering/Resolving]
  - Malaise [Recovering/Resolving]
  - Weight increased [Not Recovered/Not Resolved]
  - Tension headache [Recovering/Resolving]
  - Blood triglycerides increased [Not Recovered/Not Resolved]
  - Phobia of driving [Not Recovered/Not Resolved]
  - Hepatic enzyme increased [Recovering/Resolving]
  - Adverse event [Unknown]
  - Blood cholesterol increased [Not Recovered/Not Resolved]
  - Nightmare [Recovering/Resolving]

NARRATIVE: CASE EVENT DATE: 201311
